FAERS Safety Report 7424961-1 (Version None)
Quarter: 2011Q2

REPORT INFORMATION
  Report Type: 
  Country: None (occurrence: None)
  Receive Date: 20110419
  Receipt Date: 20110414
  Transmission Date: 20111010
  Serious: Yes (Hospitalization)
  Sender: FDA-Public Use
  Company Number: US-B.I. PHARMACEUTICALS,INC./RIDGEFIELD-2011-BP-09289BP

PATIENT
  Sex: Female

DRUGS (12)
  1. SINEMET [Concomitant]
     Indication: RESTLESS LEGS SYNDROME
  2. RESTORIL [Concomitant]
     Indication: INSOMNIA
  3. LEVOXYL [Concomitant]
     Dosage: 0.125 MG
  4. LOTREL [Concomitant]
     Indication: HYPERTENSION
  5. REQUIP [Concomitant]
     Indication: RESTLESS LEGS SYNDROME
  6. AMBIEN [Concomitant]
     Indication: INSOMNIA
  7. VICODIN [Concomitant]
     Indication: RESTLESS LEGS SYNDROME
  8. RYTHMOL [Concomitant]
     Indication: ATRIAL FIBRILLATION
     Dosage: 450 MG
  9. PRADAXA [Suspect]
     Indication: ANTICOAGULANT THERAPY
     Dosage: 300 MG
     Route: 048
     Dates: start: 20110317, end: 20110321
  10. FISH OIL OMEGA 3 [Concomitant]
     Dosage: 980 MG
  11. THYROXYL [Concomitant]
     Indication: HYPOTHYROIDISM
  12. PRADAXA [Suspect]
     Indication: ATRIAL FIBRILLATION
     Dosage: 300 MG
     Route: 048
     Dates: start: 20110309, end: 20110315

REACTIONS (4)
  - DYSPEPSIA [None]
  - ABDOMINAL PAIN [None]
  - NAUSEA [None]
  - DIARRHOEA [None]
